FAERS Safety Report 23064425 (Version 2)
Quarter: 2023Q4

REPORT INFORMATION
  Report Type: Spontaneous
  Country: GB (occurrence: GB)
  Receive Date: 20231013
  Receipt Date: 20231206
  Transmission Date: 20240110
  Serious: Yes (Other)
  Sender: FDA-Public Use
  Company Number: GB-TAKEDA-2021TUS056838

PATIENT
  Age: 67 Year
  Sex: Female

DRUGS (6)
  1. DULOXETINE HYDROCHLORIDE [Suspect]
     Active Substance: DULOXETINE HYDROCHLORIDE
     Indication: Product used for unknown indication
     Dosage: UNK UNK, UNKNOWN
     Route: 065
  2. DULOXETINE HYDROCHLORIDE [Suspect]
     Active Substance: DULOXETINE HYDROCHLORIDE
     Dosage: 60 MG, UNKNOWN
     Route: 065
  3. ENTYVIO [Suspect]
     Active Substance: VEDOLIZUMAB
     Indication: Crohn^s disease
     Dosage: 300 MG, UNKNOWN
     Route: 042
  4. ENTYVIO [Suspect]
     Active Substance: VEDOLIZUMAB
     Dosage: 300 MG, UNKNOWN
     Route: 042
     Dates: start: 20200403
  5. ENTYVIO [Suspect]
     Active Substance: VEDOLIZUMAB
     Dosage: 300 MG, UNKNOWN
     Route: 042
  6. ENTYVIO [Suspect]
     Active Substance: VEDOLIZUMAB
     Dosage: 300 MG, UNKNOWN
     Route: 042

REACTIONS (20)
  - Crohn^s disease [Unknown]
  - Gastric polyps [Unknown]
  - Gastrooesophageal reflux disease [Unknown]
  - Defaecation urgency [Unknown]
  - Breast discomfort [Unknown]
  - Pain [Unknown]
  - Infection [Unknown]
  - Sinusitis [Unknown]
  - Depressed mood [Unknown]
  - Abdominal discomfort [Unknown]
  - Blood pressure increased [Unknown]
  - Eructation [Unknown]
  - Diarrhoea [Unknown]
  - Flatulence [Unknown]
  - Dyspepsia [Unknown]
  - Constipation [Unknown]
  - Fatigue [Unknown]
  - Gastritis [Unknown]
  - Inappropriate schedule of product administration [Unknown]
  - Product prescribing issue [Unknown]

NARRATIVE: CASE EVENT DATE: 20230712
